FAERS Safety Report 7819221-0 (Version None)
Quarter: 2011Q4

REPORT INFORMATION
  Report Type: 
  Country: None (occurrence: None)
  Receive Date: 20111018
  Receipt Date: 20110106
  Transmission Date: 20120403
  Serious: No
  Sender: FDA-Public Use
  Company Number: US-ASTRAZENECA-2011SE00817

PATIENT
  Age: 20 Year
  Sex: Female

DRUGS (2)
  1. ORTHO TRI-CYCLEN LO [Concomitant]
     Indication: CONTRACEPTION
  2. MERREM [Suspect]
     Route: 042

REACTIONS (1)
  - POLYMENORRHOEA [None]
